FAERS Safety Report 6405394-3 (Version None)
Quarter: 2009Q4

REPORT INFORMATION
  Report Type: 
  Country: None (occurrence: None)
  Receive Date: 20091019
  Receipt Date: 20091009
  Transmission Date: 20100525
  Serious: Yes (Hospitalization)
  Sender: FDA-Public Use
  Company Number: FR-PFIZER INC-2009270806

PATIENT
  Age: 56 Year

DRUGS (5)
  1. IRINOTECAN HCL [Suspect]
     Indication: COLORECTAL CANCER METASTATIC
     Dosage: 260 MG/M2, CYCLIC
     Route: 042
     Dates: start: 20070725
  2. FLUOROURACIL [Suspect]
     Indication: COLORECTAL CANCER METASTATIC
     Dosage: 400 MG/M2, CYCLIC
     Route: 040
     Dates: start: 20070725
  3. FLUOROURACIL [Suspect]
     Dosage: 2400 MG/M2, CYCLIC
     Route: 041
     Dates: start: 20070725
  4. BEVACIZUMAB [Suspect]
     Indication: COLORECTAL CANCER METASTATIC
     Dosage: 5 MG, UNK
     Dates: start: 20070725
  5. FOLINIC ACID [Suspect]
     Indication: COLORECTAL CANCER METASTATIC
     Dosage: UNK
     Route: 042
     Dates: start: 20070725

REACTIONS (1)
  - PERINEAL ABSCESS [None]
